FAERS Safety Report 8502713-9 (Version None)
Quarter: 2012Q3

REPORT INFORMATION
  Report Type: 
  Country: None (occurrence: None)
  Receive Date: 20120702
  Receipt Date: 20120627
  Transmission Date: 20120928
  Serious: Yes (Hospitalization)
  Sender: FDA-Public Use
  Company Number: GER/UKI/12/0024714

PATIENT
  Age: 76 Year
  Sex: Female
  Weight: 83 kg

DRUGS (10)
  1. ASPIRIN [Concomitant]
  2. LANSOPRAZOLE [Concomitant]
  3. ACETAMINOPHEN [Concomitant]
  4. SIMVASTATIN [Concomitant]
  5. CITALOPRAM HYDROBROMIDE [Concomitant]
  6. NITROFURANTOIN [Concomitant]
  7. TRIMETHOPRIM [Concomitant]
  8. RIVASTIGMINE TARTRATE [Suspect]
     Indication: PRODUCT USED FOR UNKNOWN INDICATION
     Dates: start: 20120208, end: 20120525
  9. ALBUTEROL SULFATE [Concomitant]
  10. PERINDOPRIL ERBUMINE [Concomitant]

REACTIONS (2)
  - FALL [None]
  - BRADYCARDIA [None]
